FAERS Safety Report 6200714-7 (Version None)
Quarter: 2009Q2

REPORT INFORMATION
  Report Type: 
  Country: None (occurrence: None)
  Receive Date: 20090522
  Receipt Date: 20080613
  Transmission Date: 20091009
  Serious: No
  Sender: FDA-Public Use
  Company Number: US-ALEXION-A200800143

PATIENT
  Sex: Female

DRUGS (3)
  1. SOLIRIS [Suspect]
     Indication: PAROXYSMAL NOCTURNAL HAEMOGLOBINURIA
     Dosage: 600 MG, SINGLE
     Route: 042
     Dates: start: 20080612, end: 20080612
  2. FOLIC ACID [Concomitant]
     Dosage: UNK, QD
     Route: 048
  3. IRON [Concomitant]
     Dosage: UNK, QD
     Route: 048

REACTIONS (1)
  - HEADACHE [None]
